FAERS Safety Report 4653256-4 (Version None)
Quarter: 2005Q2

REPORT INFORMATION
  Report Type: 
  Country: None (occurrence: None)
  Receive Date: 20050503
  Receipt Date: 20050420
  Transmission Date: 20051028
  Serious: Yes (Death)
  Sender: FDA-Public Use
  Company Number: 2005062595

PATIENT
  Age: 87 Year
  Sex: Male

DRUGS (2)
  1. SULPERAZON (SULBACTAM, CEFOPERAZONE) [Suspect]
     Indication: CHOLECYSTITIS
     Dosage: 2 GRAM (1 GRAM, 2 IN 1D), INTRAVENOUS
     Route: 042
     Dates: start: 20050401, end: 20050414
  2. OMEPRAZOLE [Concomitant]

REACTIONS (3)
  - HAEMOGLOBIN DECREASED [None]
  - MULTI-ORGAN FAILURE [None]
  - PLATELET COUNT DECREASED [None]
